FAERS Safety Report 18738081 (Version 2)
Quarter: 2021Q1

REPORT INFORMATION
  Report Type: Spontaneous
  Country: US (occurrence: US)
  Receive Date: 20210114
  Receipt Date: 20210301
  Transmission Date: 20210419
  Serious: Yes (Life-Threatening, Hospitalization)
  Sender: FDA-Public Use
  Company Number: US-TEVA-2021-US-1867468

PATIENT
  Age: 55 Year
  Sex: Male

DRUGS (8)
  1. CITALOPRAM [Interacting]
     Active Substance: CITALOPRAM HYDROBROMIDE
     Indication: SUICIDAL IDEATION
     Route: 065
  2. QUETIAPINE. [Interacting]
     Active Substance: QUETIAPINE
     Indication: SUICIDAL IDEATION
     Route: 065
  3. TACROLIMUS. [Interacting]
     Active Substance: TACROLIMUS
     Indication: IMMUNOSUPPRESSANT DRUG THERAPY
     Route: 065
  4. TACROLIMUS. [Interacting]
     Active Substance: TACROLIMUS
     Dosage: 4 MILLIGRAM DAILY;
     Route: 065
  5. BENZTROPINE. [Interacting]
     Active Substance: BENZTROPINE
     Indication: SUICIDAL IDEATION
     Route: 065
  6. HALOPERIDOL. [Interacting]
     Active Substance: HALOPERIDOL
     Indication: SUICIDAL IDEATION
     Route: 065
  7. HYDROXYZINE [Interacting]
     Active Substance: HYDROXYZINE HYDROCHLORIDE
     Indication: SUICIDAL IDEATION
     Route: 065
  8. FLUOXETINE [Suspect]
     Active Substance: FLUOXETINE HYDROCHLORIDE
     Indication: SUICIDAL IDEATION
     Route: 065

REACTIONS (5)
  - Acute kidney injury [Recovered/Resolved]
  - Drug interaction [Recovering/Resolving]
  - Mental status changes [Recovering/Resolving]
  - Toxicity to various agents [Recovering/Resolving]
  - Tremor [Recovered/Resolved]
